FAERS Safety Report 7867156-X (Version None)
Quarter: 2011Q4

REPORT INFORMATION
  Report Type: 
  Country: None (occurrence: None)
  Receive Date: 20111028
  Receipt Date: 20111021
  Transmission Date: 20120403
  Serious: Yes (Hospitalization, Other)
  Sender: FDA-Public Use
  Company Number: US-BRISTOL-MYERS SQUIBB COMPANY-16058398

PATIENT
  Age: 56 Year
  Sex: Female
  Weight: 59 kg

DRUGS (7)
  1. ALLEGRA [Concomitant]
     Dosage: 1DF - 1TABS
  2. XANAX [Concomitant]
     Indication: ANXIETY
     Route: 048
  3. COLACE [Concomitant]
     Route: 048
  4. YERVOY [Suspect]
     Indication: MALIGNANT MELANOMA
     Dosage: TAKEN ON 30OCT09,25JAN,16APR,2JUL,1OCT10,3JAN,28MAR,13JUN,12SEP11. VIAL NO:190312-13,14,15. 603MG
     Route: 042
     Dates: start: 20090810
  5. EFFEXOR [Concomitant]
  6. CLONOPIN [Concomitant]
     Dosage: NIGHTLY AT BEDTIME.
  7. VICODIN [Concomitant]
     Dosage: 1 DF - 1TAB;VICODIN 5/500;

REACTIONS (8)
  - GASTROINTESTINAL HAEMORRHAGE [None]
  - ANGIOSARCOMA [None]
  - ARTHRALGIA [None]
  - DEPRESSION [None]
  - SKIN DISORDER [None]
  - AMNESIA [None]
  - PRURITUS [None]
  - ANAEMIA [None]
